FAERS Safety Report 26145094 (Version 1)
Quarter: 2025Q4

REPORT INFORMATION
  Report Type: Report from Study
  Country: US (occurrence: US)
  Receive Date: 20251211
  Receipt Date: 20251211
  Transmission Date: 20260118
  Serious: Yes (Hospitalization)
  Sender: ABBVIE
  Company Number: US-ABBVIE-6581556

PATIENT
  Age: 32 Year
  Sex: Female

DRUGS (5)
  1. SKYRIZI [Suspect]
     Active Substance: RISANKIZUMAB-RZAA
     Indication: Crohn^s disease
     Dosage: AT WEEK 12
     Route: 058
     Dates: start: 20251205
  2. SKYRIZI [Suspect]
     Active Substance: RISANKIZUMAB-RZAA
     Indication: Crohn^s disease
     Dosage: TIME INTERVAL: TOTAL: WEEK 4
     Route: 042
     Dates: start: 202506, end: 202506
  3. SKYRIZI [Suspect]
     Active Substance: RISANKIZUMAB-RZAA
     Indication: Crohn^s disease
     Dosage: TIME INTERVAL: TOTAL: WEEK 0
     Route: 042
     Dates: start: 202505, end: 202505
  4. SKYRIZI [Suspect]
     Active Substance: RISANKIZUMAB-RZAA
     Indication: Crohn^s disease
     Dosage: TIME INTERVAL: TOTAL: WEEK 8
     Route: 042
     Dates: start: 202507, end: 202507
  5. SKYRIZI [Suspect]
     Active Substance: RISANKIZUMAB-RZAA
     Indication: Crohn^s disease
     Dosage: TIME INTERVAL: TOTAL
     Route: 042
     Dates: start: 20251106, end: 20251106

REACTIONS (5)
  - Viral infection [Recovered/Resolved]
  - Headache [Recovered/Resolved]
  - Sinusitis [Recovered/Resolved]
  - Nausea [Recovered/Resolved]
  - Bacterial infection [Recovered/Resolved]

NARRATIVE: CASE EVENT DATE: 20250101
